FAERS Safety Report 4746869-2 (Version None)
Quarter: 2005Q3

REPORT INFORMATION
  Report Type: 
  Country: None (occurrence: None)
  Receive Date: 20050817
  Receipt Date: 20020422
  Transmission Date: 20060218
  Serious: Yes (Hospitalization)
  Sender: FDA-Public Use
  Company Number: SE-AMGEN-02040719

PATIENT
  Sex: Female

DRUGS (7)
  1. ENBREL [Suspect]
     Indication: RHEUMATOID ARTHRITIS
     Route: 058
     Dates: start: 19990801, end: 20010601
  2. ENBREL [Suspect]
  3. EFFORTIL [Concomitant]
  4. PREDNISOLONE [Concomitant]
  5. METHENAMINE HIPPURATE [Concomitant]
  6. OMEPRAZOLE MAGNESIUM [Concomitant]
  7. METHOTREXATE [Concomitant]

REACTIONS (5)
  - CUTANEOUS TUBERCULOSIS [None]
  - IMPAIRED HEALING [None]
  - SKIN ULCER [None]
  - STAPHYLOCOCCAL INFECTION [None]
  - WOUND INFECTION STAPHYLOCOCCAL [None]
